FAERS Safety Report 8382029-4 (Version None)
Quarter: 2012Q2

REPORT INFORMATION
  Report Type: 
  Country: None (occurrence: None)
  Receive Date: 20120524
  Receipt Date: 20120522
  Transmission Date: 20120825
  Serious: Yes (Other)
  Sender: FDA-Public Use
  Company Number: US-BAYER-2012-050786

PATIENT
  Sex: Female

DRUGS (1)
  1. MIRENA [Suspect]
     Dosage: 20 MCG/24HR, CONT
     Route: 015
     Dates: start: 20120201

REACTIONS (5)
  - VAGINAL DISCHARGE [None]
  - MUSCLE SPASMS [None]
  - VAGINAL HAEMORRHAGE [None]
  - MEDICAL DEVICE COMPLICATION [None]
  - HYPOMENORRHOEA [None]
